FAERS Safety Report 5343910-3 (Version None)
Quarter: 2007Q2

REPORT INFORMATION
  Report Type: 
  Country: None (occurrence: None)
  Receive Date: 20070416
  Receipt Date: 20070116
  Transmission Date: 20071010
  Serious: No
  Sender: FDA-Public Use
  Company Number: 2007SP000178

PATIENT
  Age: 50 Year
  Sex: Male
  Weight: 90.7194 kg

DRUGS (2)
  1. LUNESTA [Suspect]
     Indication: ARTHRALGIA
     Dosage: 2 MG;HS;ORAL
     Route: 048
     Dates: start: 20070101, end: 20070101
  2. LUNESTA [Suspect]
     Indication: INSOMNIA
     Dosage: 2 MG;HS;ORAL
     Route: 048
     Dates: start: 20070101, end: 20070101

REACTIONS (6)
  - ANXIETY [None]
  - DYSGEUSIA [None]
  - INITIAL INSOMNIA [None]
  - NERVOUSNESS [None]
  - PAROSMIA [None]
  - STOMACH DISCOMFORT [None]
